FAERS Safety Report 6038419-8 (Version None)
Quarter: 2009Q1

REPORT INFORMATION
  Report Type: 
  Country: None (occurrence: None)
  Receive Date: 20090115
  Receipt Date: 20081219
  Transmission Date: 20090719
  Serious: No
  Sender: FDA-Public Use
  Company Number: US-BAYER-200910039BCC

PATIENT
  Age: 76 Year
  Sex: Female

DRUGS (7)
  1. ALEVE [Suspect]
     Indication: DRUG USE FOR UNKNOWN INDICATION
     Dates: start: 20081218
  2. LASIX [Concomitant]
  3. LISINOPRIL [Concomitant]
  4. METOPROLOL TARTRATE [Concomitant]
  5. LYRICA [Concomitant]
  6. PLAVIX [Concomitant]
  7. SIMVASTATIN [Concomitant]

REACTIONS (1)
  - NO ADVERSE EVENT [None]
